FAERS Safety Report 4267188-7 (Version None)
Quarter: 2004Q1

REPORT INFORMATION
  Report Type: 
  Country: None (occurrence: None)
  Receive Date: 20040107
  Receipt Date: 20021015
  Transmission Date: 20041129
  Serious: Yes (Death)
  Sender: FDA-Public Use
  Company Number: F01200200424

PATIENT
  Age: 75 Year
  Sex: Male

DRUGS (7)
  1. CLOPIDOGREL BISULFATE [Suspect]
     Indication: CEREBRAL INFARCTION
     Dosage: 75 MG QD; ORAL
     Route: 048
     Dates: start: 20020509, end: 20021006
  2. TAGAMET [Concomitant]
  3. NITROL [Concomitant]
  4. DILTIAZEM HCL [Concomitant]
  5. KETAS (IBUDILAST) [Concomitant]
  6. ALLOPURINOL [Concomitant]
  7. SELBEX(TEPRENONE) [Concomitant]

REACTIONS (4)
  - AORTIC ANEURYSM RUPTURE [None]
  - BLEEDING TIME PROLONGED [None]
  - OPERATIVE HAEMORRHAGE [None]
  - PLATELET COUNT DECREASED [None]
